FAERS Safety Report 24210789 (Version 1)
Quarter: 2024Q3

REPORT INFORMATION
  Report Type: Spontaneous
  Country: US (occurrence: None)
  Receive Date: 20240814
  Receipt Date: 20240814
  Transmission Date: 20241017
  Serious: Yes (Hospitalization)
  Sender: Public
  Company Number: None

PATIENT
  Age: 64 Year
  Sex: Male
  Weight: 59.4 kg

DRUGS (4)
  1. FLUOROURACIL [Suspect]
     Active Substance: FLUOROURACIL
  2. IRINOTECAN (CPT-11, CAMPTOSAR) [Concomitant]
  3. LEUCOVORIN CALCIUM [Concomitant]
  4. NIVOLUMAB [Concomitant]
     Active Substance: NIVOLUMAB

REACTIONS (5)
  - Abdominal pain [None]
  - Gastritis [None]
  - Pyrexia [None]
  - Insomnia [None]
  - Dysgeusia [None]

NARRATIVE: CASE EVENT DATE: 20240809
